FAERS Safety Report 12345149 (Version 3)
Quarter: 2016Q2

REPORT INFORMATION
  Report Type: Spontaneous
  Country: IT (occurrence: IT)
  Receive Date: 20160507
  Receipt Date: 20160606
  Transmission Date: 20160815
  Serious: Yes (Hospitalization, Other)
  Sender: FDA-Public Use
  Company Number: IT-AMGEN-ITASP2016056118

PATIENT
  Age: 67 Year
  Sex: Female

DRUGS (2)
  1. PROLIA [Suspect]
     Active Substance: DENOSUMAB
     Indication: PRODUCT USED FOR UNKNOWN INDICATION
     Dosage: 60 MG, Q6MO
     Route: 058
     Dates: start: 20150508, end: 20160426
  2. COLECALCIFEROL [Concomitant]
     Active Substance: CHOLECALCIFEROL

REACTIONS (4)
  - Device related infection [Recovering/Resolving]
  - Sepsis [Unknown]
  - Pneumococcal infection [Recovering/Resolving]
  - Osteoarthritis [Unknown]

NARRATIVE: CASE EVENT DATE: 20160129
